FAERS Safety Report 5284470-5 (Version None)
Quarter: 2007Q1

REPORT INFORMATION
  Report Type: 
  Country: None (occurrence: None)
  Receive Date: 20070330
  Receipt Date: 20070330
  Transmission Date: 20070707
  Serious: Yes (Hospitalization)
  Sender: FDA-Public Use
  Company Number: None

PATIENT
  Age: 61 Year
  Sex: Male
  Weight: 56.246 kg

DRUGS (11)
  1. PREDNISOLONE [Suspect]
     Indication: CHRONIC OBSTRUCTIVE PULMONARY DISEASE
     Dosage: 40 MG X 3 DAYS, 20 MG X 3 DAYS 10 MG X 3 DAYS PO
     Route: 048
     Dates: start: 20070301, end: 20070308
  2. ATENOLOL [Concomitant]
  3. CITALOPRAM HYDROBROMIDE [Concomitant]
  4. ETODOLAC [Concomitant]
  5. FELODIPINE [Concomitant]
  6. MOMETASONE FUROATE [Concomitant]
  7. FORMOTEROL FUMARATE [Concomitant]
  8. RANITIDINE [Concomitant]
  9. THIAMINE [Concomitant]
  10. PREDNISONE TAB [Concomitant]
  11. TIOTROPIUM [Concomitant]

REACTIONS (8)
  - ANGER [None]
  - CONFUSIONAL STATE [None]
  - DELUSIONAL DISORDER, PERSECUTORY TYPE [None]
  - FEELING ABNORMAL [None]
  - HALLUCINATION [None]
  - HALLUCINATION, VISUAL [None]
  - PSYCHOTIC DISORDER [None]
  - STRESS [None]
